FAERS Safety Report 4279637-9 (Version None)
Quarter: 2004Q1

REPORT INFORMATION
  Report Type: 
  Country: None (occurrence: None)
  Receive Date: 20040123
  Receipt Date: 20040109
  Transmission Date: 20041129
  Serious: Yes (Hospitalization)
  Sender: FDA-Public Use
  Company Number: MEST00304000083

PATIENT
  Age: 30 Year
  Sex: Male
  Weight: 70 kg

DRUGS (3)
  1. ROWASA [Suspect]
     Indication: CROHN'S DISEASE
     Dosage: 2 DF DAILY PO
     Route: 048
     Dates: start: 20030301, end: 20030101
  2. ROWASA [Suspect]
     Indication: CROHN'S DISEASE
     Dosage: 2 DF DAILY PO
     Route: 048
     Dates: start: 20030601, end: 20030613
  3. PREDNISOLONE [Suspect]
     Indication: CROHN'S DISEASE
     Dosage: 20 MG DAILY PO
     Route: 048
     Dates: end: 20030613

REACTIONS (3)
  - HEPATITIS [None]
  - INFLAMMATION [None]
  - INTERSTITIAL LUNG DISEASE [None]
